FAERS Safety Report 8763331 (Version 1)
Quarter: 2012Q4

REPORT INFORMATION
  Report Type: 
  Country: US (occurrence: US)
  Receive Date: 20120830
  Receipt Date: 20120830
  Transmission Date: 20130627
  Serious: No
  Sender: FDA-Public Use
  Company Number: US-PFIZER INC-2012209964

PATIENT

DRUGS (1)
  1. TOVIAZ [Suspect]
     Dosage: 8 mg, 1x/day

REACTIONS (2)
  - Eructation [Unknown]
  - Nausea [Unknown]
